FAERS Safety Report 7789414-X (Version None)
Quarter: 2011Q3

REPORT INFORMATION
  Report Type: 
  Country: None (occurrence: None)
  Receive Date: 20110930
  Receipt Date: 20110921
  Transmission Date: 20111222
  Serious: Yes (Life-Threatening, Hospitalization)
  Sender: FDA-Public Use
  Company Number: DE-TEVA-302014GER

PATIENT
  Age: 76 Year
  Sex: Female
  Weight: 71 kg

DRUGS (5)
  1. AMIODARONE HCL [Interacting]
     Indication: ATRIAL FIBRILLATION
     Route: 042
     Dates: start: 20110226, end: 20110226
  2. METOPROLOL TARTRATE [Concomitant]
     Indication: ATRIAL FIBRILLATION
     Route: 048
     Dates: start: 20100101
  3. MULTAQ [Suspect]
     Indication: ATRIAL FIBRILLATION
     Dosage: 800 MILLIGRAM;
     Route: 048
     Dates: start: 20110103, end: 20110226
  4. DIGOXIN [Interacting]
     Indication: ATRIAL FIBRILLATION
     Route: 042
     Dates: start: 20110225, end: 20110225
  5. MARCUMAR [Concomitant]
     Route: 048

REACTIONS (3)
  - TORSADE DE POINTES [None]
  - DRUG INTERACTION [None]
  - LONG QT SYNDROME [None]
